FAERS Safety Report 11266810 (Version 1)
Quarter: 2015Q3

REPORT INFORMATION
  Report Type: Spontaneous
  Country: FR (occurrence: FR)
  Receive Date: 20150713
  Receipt Date: 20150713
  Transmission Date: 20151125
  Serious: Yes (Hospitalization, Other)
  Sender: FDA-Public Use
  Company Number: FR-ELI_LILLY_AND_COMPANY-FR201507000618

PATIENT
  Age: 55 Year
  Sex: Male

DRUGS (7)
  1. ZYPREXA [Suspect]
     Active Substance: OLANZAPINE
     Indication: PRODUCT USED FOR UNKNOWN INDICATION
     Dosage: 5 MG DAILY IN THE EVENING
     Route: 048
     Dates: start: 2012, end: 201309
  2. TERCIAN                            /00759301/ [Concomitant]
     Active Substance: CYAMEMAZINE
     Dosage: 12.5 MG, DAILY IN THE EVENING
     Route: 065
     Dates: end: 201309
  3. ZYPREXA [Suspect]
     Active Substance: OLANZAPINE
     Dosage: UNK, UNKNOWN
     Route: 065
     Dates: start: 201404
  4. SULFARLEM S [Concomitant]
     Dosage: 25 MG, TID  (MORNING, NOON, EVENING)
     Route: 065
     Dates: end: 20140423
  5. TERCIAN                            /00759301/ [Concomitant]
     Active Substance: CYAMEMAZINE
     Dosage: UNK
     Route: 042
     Dates: start: 201309, end: 201404
  6. LYSANXIA [Concomitant]
     Active Substance: PRAZEPAM
     Dosage: 10 MG, TID (MORNING, NOON, EVENING)
     Route: 065
  7. SOLIAN [Suspect]
     Active Substance: AMISULPRIDE
     Indication: PRODUCT USED FOR UNKNOWN INDICATION
     Dosage: 400 MG, BID (MORNING AND EVENING)
     Route: 065

REACTIONS (7)
  - Pancreatitis acute [Recovered/Resolved]
  - Diabetes mellitus [Not Recovered/Not Resolved]
  - Splenic vein thrombosis [Unknown]
  - Pancreatic insufficiency [Unknown]
  - Pancreatitis acute [Recovered/Resolved]
  - Hypertriglyceridaemia [Recovered/Resolved]
  - Pancreatitis acute [Recovered/Resolved]

NARRATIVE: CASE EVENT DATE: 20130909
